FAERS Safety Report 4318385-3 (Version None)
Quarter: 2004Q1

REPORT INFORMATION
  Report Type: 
  Country: None (occurrence: None)
  Receive Date: 20040315
  Receipt Date: 20040301
  Transmission Date: 20041129
  Serious: Yes (Hospitalization)
  Sender: FDA-Public Use
  Company Number: NSADSS2003019531

PATIENT
  Age: 50 Year
  Sex: Female

DRUGS (18)
  1. INFLIXIMAB, RECOMBINANT (INFLIXIMAB, RECOMBINANT) [Suspect]
     Indication: RHEUMATOID ARTHRITIS
     Dosage: 10 MG/KG, 1 IN 1 AS NECESSARY, INTRAVENOUS DRIP
     Route: 041
     Dates: start: 20020708, end: 20020708
  2. INFLIXIMAB, RECOMBINANT (INFLIXIMAB, RECOMBINANT) [Suspect]
     Indication: RHEUMATOID ARTHRITIS
     Dosage: 10 MG/KG, 1 IN 1 AS NECESSARY, INTRAVENOUS DRIP
     Route: 041
     Dates: start: 20020724, end: 20020724
  3. INFLIXIMAB, RECOMBINANT (INFLIXIMAB, RECOMBINANT) [Suspect]
     Indication: RHEUMATOID ARTHRITIS
     Dosage: 10 MG/KG, 1 IN 1 AS NECESSARY, INTRAVENOUS DRIP
     Route: 041
     Dates: start: 20020820, end: 20020820
  4. INFLIXIMAB, RECOMBINANT (INFLIXIMAB, RECOMBINANT) [Suspect]
     Indication: RHEUMATOID ARTHRITIS
     Dosage: 10 MG/KG, 1 IN 1 AS NECESSARY, INTRAVENOUS DRIP
     Route: 041
     Dates: start: 20021016, end: 20021016
  5. INFLIXIMAB, RECOMBINANT (INFLIXIMAB, RECOMBINANT) [Suspect]
     Indication: RHEUMATOID ARTHRITIS
     Dosage: 10 MG/KG, 1 IN 1 AS NECESSARY, INTRAVENOUS DRIP
     Route: 041
     Dates: start: 20021210, end: 20021210
  6. INFLIXIMAB, RECOMBINANT (INFLIXIMAB, RECOMBINANT) [Suspect]
     Indication: RHEUMATOID ARTHRITIS
     Dosage: 10 MG/KG, 1 IN 1 AS NECESSARY, INTRAVENOUS DRIP
     Route: 041
     Dates: start: 20030107, end: 20030107
  7. INFLIXIMAB, RECOMBINANT (INFLIXIMAB, RECOMBINANT) [Suspect]
     Indication: RHEUMATOID ARTHRITIS
     Dosage: 10 MG/KG, 1 IN 1 AS NECESSARY, INTRAVENOUS DRIP
     Route: 041
     Dates: start: 20030210, end: 20030210
  8. INFLIXIMAB, RECOMBINANT (INFLIXIMAB, RECOMBINANT) [Suspect]
     Indication: RHEUMATOID ARTHRITIS
     Dosage: 10 MG/KG, 1 IN 1 AS NECESSARY, INTRAVENOUS DRIP
     Route: 041
     Dates: start: 20030331, end: 20030331
  9. ELTROXIN (LEVOTHYROXINE SODIUM) [Concomitant]
  10. CAPTOPRIL [Concomitant]
  11. COUDEFEN          (ALL OTHER THERAPEUTIC PRODUCTS) [Concomitant]
  12. METOCARD (METOPROLOL TARTRATE) [Concomitant]
  13. XANAX [Concomitant]
  14. PRAMOLAN (OPIPRAMOL HYDROCHLORIDE) [Concomitant]
  15. TRANXENE [Concomitant]
  16. AMLOZEK (AMLODIPINE) [Concomitant]
  17. METHOTREXATE [Concomitant]
  18. PRESTARIUM (PERINDOPRIL) [Concomitant]

REACTIONS (3)
  - BLOOD PRESSURE INCREASED [None]
  - HYPOTHYROIDISM [None]
  - VENTRICULAR EXTRASYSTOLES [None]
